FAERS Safety Report 6534426-7 (Version None)
Quarter: 2010Q1

REPORT INFORMATION
  Report Type: 
  Country: None (occurrence: None)
  Receive Date: 20100112
  Receipt Date: 20100104
  Transmission Date: 20100710
  Serious: Yes (Hospitalization)
  Sender: FDA-Public Use
  Company Number: FR-ABBOTT-10P-056-0617517-00

PATIENT
  Age: 28 Year
  Sex: Female

DRUGS (4)
  1. DEPAKOTE [Suspect]
     Indication: BIPOLAR DISORDER
     Route: 048
     Dates: start: 20091004
  2. SOLIAN [Suspect]
     Indication: BIPOLAR DISORDER
     Route: 048
     Dates: start: 20091004, end: 20091014
  3. TERCIAN [Suspect]
     Indication: BIPOLAR DISORDER
     Route: 048
     Dates: start: 20091004
  4. RIVOTRIL [Suspect]
     Indication: BIPOLAR DISORDER
     Dates: start: 20091004

REACTIONS (2)
  - RENAL FAILURE ACUTE [None]
  - RHABDOMYOLYSIS [None]
